FAERS Safety Report 23214712 (Version 1)
Quarter: 2023Q4

REPORT INFORMATION
  Report Type: Spontaneous
  Country: DE (occurrence: DE)
  Receive Date: 20231121
  Receipt Date: 20231121
  Transmission Date: 20240110
  Serious: Yes (Disabling, Other)
  Sender: FDA-Public Use
  Company Number: DE-BoehringerIngelheim-2023-BI-273282

PATIENT
  Age: 56 Year
  Sex: Female

DRUGS (2)
  1. JARDIANCE [Suspect]
     Active Substance: EMPAGLIFLOZIN
     Indication: Diabetes mellitus
     Dosage: 25MG 1-0-0 PER DAY
     Dates: start: 202212, end: 20230731
  2. JARDIANCE [Suspect]
     Active Substance: EMPAGLIFLOZIN
     Indication: Renal failure
     Dosage: 10MG 1-0-0 PER DAY
     Dates: start: 20230801

REACTIONS (2)
  - Finger amputation [Unknown]
  - Sepsis [Unknown]

NARRATIVE: CASE EVENT DATE: 20230901
